FAERS Safety Report 19979328 (Version 1)
Quarter: 2021Q4

REPORT INFORMATION
  Report Type: Report from Study
  Country: None (occurrence: US)
  Receive Date: 20211021
  Receipt Date: 20211021
  Transmission Date: 20220304
  Serious: Yes (Other)
  Sender: FDA-Public Use
  Company Number: US-ABBVIE-21K-163-3958348-00

PATIENT
  Sex: Female

DRUGS (1)
  1. HUMIRA [Suspect]
     Active Substance: ADALIMUMAB
     Indication: Rheumatoid arthritis
     Dosage: CITRATE FREE
     Route: 058

REACTIONS (5)
  - Musculoskeletal disorder [Recovering/Resolving]
  - Back disorder [Recovering/Resolving]
  - Intervertebral disc disorder [Unknown]
  - Musculoskeletal stiffness [Unknown]
  - Pain [Recovering/Resolving]
